FAERS Safety Report 4318272-0 (Version None)
Quarter: 2004Q1

REPORT INFORMATION
  Report Type: 
  Country: None (occurrence: None)
  Receive Date: 20040315
  Receipt Date: 20040128
  Transmission Date: 20041129
  Serious: No
  Sender: FDA-Public Use
  Company Number: 2003185067US

PATIENT
  Age: 48 Year
  Sex: Female

DRUGS (1)
  1. BEXTRA [Suspect]
     Indication: LIMB INJURY

REACTIONS (3)
  - BLEEDING TIME PROLONGED [None]
  - HAEMARTHROSIS [None]
  - MENORRHAGIA [None]
